FAERS Safety Report 8725106 (Version 2)
Quarter: 2012Q4

REPORT INFORMATION
  Report Type: 
  Country: US (occurrence: US)
  Receive Date: 20120815
  Receipt Date: 20121003
  Transmission Date: 20130627
  Serious: Yes (Death, Hospitalization)
  Sender: FDA-Public Use
  Company Number: US-GLAXOSMITHKLINE-A0989089A

PATIENT
  Age: 72 Year
  Sex: Female

DRUGS (10)
  1. VOTRIENT [Suspect]
     Indication: SARCOMA
     Dosage: 1TAB Twice per day
     Route: 048
  2. NORVASC [Concomitant]
  3. BYSTOLIC [Concomitant]
  4. ZETIA [Concomitant]
  5. HCTZ [Concomitant]
  6. SYNTHROID [Concomitant]
  7. LEXAPRO [Concomitant]
  8. ATIVAN [Concomitant]
  9. NYSTATIN ORAL SUSPENSION [Concomitant]
  10. CARAFATE [Concomitant]

REACTIONS (2)
  - Sarcoma [Fatal]
  - Malaise [Unknown]
